FAERS Safety Report 8318082 (Version 3)
Quarter: 2012Q4

REPORT INFORMATION
  Report Type: Report from Study
  Country: JP (occurrence: JP)
  Receive Date: 20120103
  Receipt Date: 20120918
  Transmission Date: 20130627
  Serious: Yes (Death, Life-Threatening, Disabling, Other)
  Sender: FDA-Public Use
  Company Number: JP-GENZYME-THYM-1003060

PATIENT
  Age: 25 Year
  Sex: Male
  Weight: 56 kg

DRUGS (39)
  1. THYMOGLOBULIN [Suspect]
     Indication: BONE MARROW CONDITIONING REGIMEN
     Dosage: 50 mg, qd
     Route: 042
     Dates: start: 20110219, end: 20110220
  2. ACICLOVIR [Concomitant]
     Indication: ANTIVIRAL PROPHYLAXIS
     Dosage: UNK
     Route: 065
     Dates: start: 20110219, end: 20120130
  3. ACICLOVIR [Concomitant]
     Dosage: UNK
     Route: 065
     Dates: start: 20120120, end: 20120129
  4. FLUCONAZOLE [Concomitant]
     Indication: ANTIFUNGAL PROPHYLAXIS
     Dosage: UNK
     Route: 065
     Dates: start: 20110219, end: 20110429
  5. URSODEOXYCHOLIC ACID [Concomitant]
     Indication: PROPHYLAXIS
     Dosage: UNK
     Route: 065
     Dates: start: 20110219, end: 20110429
  6. RABEPRAZOLE SODIUM [Concomitant]
     Indication: PROPHYLAXIS AGAINST GASTROINTESTINAL ULCER
     Dosage: UNK
     Route: 065
     Dates: start: 20110219, end: 20110429
  7. TACROLIMUS [Concomitant]
     Indication: PROPHYLAXIS AGAINST GRAFT VERSUS HOST DISEASE
     Dosage: UNK
     Route: 065
     Dates: start: 20110220, end: 20110419
  8. GANCICLOVIR [Concomitant]
     Indication: ANTIVIRAL PROPHYLAXIS
     Dosage: UNK
     Route: 065
     Dates: start: 20110315, end: 20110322
  9. METHYLPREDNISOLONE SODIUM SUCCINATE [Concomitant]
     Indication: PROPHYLAXIS
     Dosage: UNK
     Route: 065
     Dates: start: 20110219, end: 20110220
  10. METHYLPREDNISOLONE SODIUM SUCCINATE [Concomitant]
     Indication: PROPHYLAXIS AGAINST GRAFT VERSUS HOST DISEASE
     Dosage: UNK
     Route: 065
     Dates: start: 20110221, end: 20110404
  11. FLUDARABINE PHOSPHATE [Concomitant]
     Indication: BONE MARROW CONDITIONING REGIMEN
     Dosage: UNK
     Route: 065
     Dates: start: 20110214, end: 20110218
  12. CYTARABINE [Concomitant]
     Indication: BONE MARROW CONDITIONING REGIMEN
     Dosage: UNK
     Route: 065
     Dates: start: 20110214, end: 20110216
  13. MELPHALAN [Concomitant]
     Indication: BONE MARROW CONDITIONING REGIMEN
     Dosage: UNK
     Route: 065
     Dates: start: 20110217, end: 20110218
  14. MAGNESIUM OXIDE [Concomitant]
     Indication: CONSTIPATION PROPHYLAXIS
     Dosage: UNK
     Route: 065
     Dates: start: 20110304, end: 20110313
  15. PREDNISOLONE [Concomitant]
     Indication: PROPHYLAXIS AGAINST GRAFT VERSUS HOST DISEASE
     Dosage: UNK
     Route: 065
     Dates: start: 20110405, end: 20110420
  16. PREDNISOLONE [Concomitant]
     Dosage: UNK
     Route: 065
     Dates: start: 20110614, end: 20120130
  17. LANSOPRAZOLE [Concomitant]
     Indication: PROPHYLAXIS AGAINST GASTROINTESTINAL ULCER
     Dosage: UNK
     Route: 065
     Dates: start: 20110604, end: 20120130
  18. REBAMIPIDE [Concomitant]
     Indication: PROPHYLAXIS AGAINST GASTROINTESTINAL ULCER
     Dosage: UNK
     Route: 065
     Dates: start: 20110606, end: 20110729
  19. VORICONAZOLE [Concomitant]
     Indication: ANTIFUNGAL PROPHYLAXIS
     Dosage: UNK
     Route: 065
     Dates: start: 20110702, end: 20120130
  20. AZULENE SODIUM SULFONATE [Concomitant]
     Indication: PROPHYLAXIS AGAINST GASTROINTESTINAL ULCER
     Dosage: UNK
     Route: 065
     Dates: start: 20110708, end: 20120130
  21. HYDROCORTISONE SODIUM SUCCINATE [Concomitant]
     Indication: PROPHYLAXIS
     Dosage: UNK
     Route: 065
     Dates: start: 20110221, end: 20110221
  22. HYDROCORTISONE SODIUM SUCCINATE [Concomitant]
     Indication: PROPHYLAXIS
     Dosage: UNK
     Route: 065
     Dates: start: 20120120, end: 20120129
  23. HYDROXYZINE PAMOATE [Concomitant]
     Indication: PROPHYLAXIS
     Dosage: UNK
     Route: 065
     Dates: start: 20110221, end: 20110221
  24. CEFTAZIDIME [Concomitant]
     Indication: ANTIBIOTIC PROPHYLAXIS
     Dosage: UNK
     Route: 065
     Dates: start: 20110303, end: 20110307
  25. GANCICLOVIR [Concomitant]
     Indication: ANTIVIRAL PROPHYLAXIS
     Dosage: UNK
     Route: 065
     Dates: start: 20110315, end: 20110525
  26. CEFEPIME HYDROCHLORIDE [Concomitant]
     Indication: ANTIBIOTIC PROPHYLAXIS
     Dosage: UNK
     Route: 065
     Dates: start: 20110217, end: 20110302
  27. CEFEPIME HYDROCHLORIDE [Concomitant]
     Dosage: UNK
     Route: 065
     Dates: start: 20110416, end: 20110429
  28. MICAFUNGIN SODIUM [Concomitant]
     Indication: ANTIFUNGAL PROPHYLAXIS
     Dosage: UNK
     Route: 065
     Dates: start: 20110421, end: 20110701
  29. MICAFUNGIN SODIUM [Concomitant]
     Dosage: UNK
     Route: 065
     Dates: start: 20120121, end: 20120129
  30. MEROPENEM TRIHYDRATE [Concomitant]
     Indication: ANTIBIOTIC PROPHYLAXIS
     Dosage: UNK
     Route: 065
     Dates: start: 20110504, end: 20110527
  31. MEROPENEM TRIHYDRATE [Concomitant]
     Dosage: UNK
     Route: 065
     Dates: start: 20120120, end: 20120127
  32. OMEPRAZOLE [Concomitant]
     Indication: PROPHYLAXIS AGAINST GASTROINTESTINAL ULCER
     Dosage: UNK
     Route: 065
     Dates: start: 20110430, end: 20110615
  33. OMEPRAZOLE [Concomitant]
     Dosage: UNK
     Route: 065
     Dates: start: 20110810, end: 20120130
  34. OMEPRAZOLE [Concomitant]
     Dosage: UNK
     Route: 065
     Dates: start: 20120120, end: 20120129
  35. PHENYTOIN [Concomitant]
     Indication: CONVULSION PROPHYLAXIS
     Dosage: UNK
     Route: 065
     Dates: start: 20120120, end: 20120129
  36. IMMUNOGLOBULIN HUMAN NORMAL [Concomitant]
     Indication: INFECTION PROPHYLAXIS
     Dosage: UNK
     Route: 065
     Dates: start: 20120120, end: 20120122
  37. VANCOMYCIN HYDROCHLORIDE [Concomitant]
     Indication: ANTIBIOTIC PROPHYLAXIS
     Dosage: UNK
     Route: 065
     Dates: start: 20110519, end: 20110523
  38. CEFAZOLIN SODIUM [Concomitant]
     Indication: ANTIBIOTIC PROPHYLAXIS
     Dosage: UNK
     Route: 065
     Dates: start: 20110710, end: 20110717
  39. GLYCERIN [Concomitant]
     Indication: PROPHYLAXIS
     Dosage: UNK
     Route: 065
     Dates: start: 20110812, end: 20120130

REACTIONS (14)
  - Ventricular tachycardia [Recovered/Resolved]
  - Pulmonary alveolar haemorrhage [Recovered/Resolved]
  - Thrombotic microangiopathy [Recovered/Resolved with Sequelae]
  - Renal failure [Fatal]
  - Gastrointestinal haemorrhage [Recovered/Resolved]
  - Chronic graft versus host disease [Unknown]
  - Pseudomonal sepsis [Fatal]
  - Post transplant lymphoproliferative disorder [Fatal]
  - Neutropenia [Recovered/Resolved]
  - Hypertension [Fatal]
  - Staphylococcal sepsis [Recovered/Resolved]
  - Infection [Recovered/Resolved]
  - Malabsorption [Fatal]
  - Insomnia [Recovered/Resolved]
